FAERS Safety Report 7653823-X (Version None)
Quarter: 2011Q3

REPORT INFORMATION
  Report Type: 
  Country: None (occurrence: None)
  Receive Date: 20110803
  Receipt Date: 20110728
  Transmission Date: 20111222
  Serious: Yes (Hospitalization, Other)
  Sender: FDA-Public Use
  Company Number: US-PFIZER INC-2011172440

PATIENT
  Sex: Female
  Weight: 74.83 kg

DRUGS (6)
  1. PHENYTOIN [Suspect]
     Dosage: 100 MG, UNK
     Route: 048
     Dates: start: 20110727, end: 20110701
  2. CLORAZEPATE DIPOTASSIUM [Concomitant]
     Indication: SINUS DISORDER
     Dosage: UNK
  3. DILANTIN [Concomitant]
     Indication: CONVULSION
     Dosage: 90 MG, DAILY
     Route: 048
  4. DILANTIN [Concomitant]
     Indication: CONVULSION
     Dosage: 200 MG, DAILY
     Route: 048
  5. PHENYTOIN [Suspect]
     Indication: EPILEPSY
     Dosage: 100 MG, UNK
     Route: 048
  6. ALLEGRA [Concomitant]
     Indication: HYPERSENSITIVITY
     Dosage: UNK

REACTIONS (2)
  - PRESYNCOPE [None]
  - MALAISE [None]
